FAERS Safety Report 7226963-7 (Version None)
Quarter: 2011Q1

REPORT INFORMATION
  Report Type: 
  Country: None (occurrence: None)
  Receive Date: 20110111
  Receipt Date: 20110111
  Transmission Date: 20110831
  Serious: Yes (Other)
  Sender: FDA-Public Use
  Company Number: None

PATIENT
  Age: 65 Year
  Sex: Female
  Weight: 63.5036 kg

DRUGS (1)
  1. METFORMIN HYDROCHLORIDE [Suspect]
     Indication: GLUCOSE TOLERANCE IMPAIRED
     Dosage: 500 MG 2 TIMES
     Dates: start: 20101209, end: 20101221

REACTIONS (1)
  - DIARRHOEA [None]
